FAERS Safety Report 25878164 (Version 1)
Quarter: 2025Q4

REPORT INFORMATION
  Report Type: Spontaneous
  Country: CA (occurrence: CA)
  Receive Date: 20251003
  Receipt Date: 20251003
  Transmission Date: 20260118
  Serious: Yes (Other)
  Sender: ROCHE
  Company Number: CA-ROCHE-10000397997

PATIENT
  Age: 51 Year
  Sex: Female

DRUGS (8)
  1. RITUXIMAB [Suspect]
     Active Substance: RITUXIMAB
     Indication: Systemic lupus erythematosus
     Route: 042
  2. RITUXIMAB [Suspect]
     Active Substance: RITUXIMAB
     Indication: Cardiac sarcoidosis
  3. MYFORTIC [Suspect]
     Active Substance: MYCOPHENOLATE SODIUM
     Indication: Product used for unknown indication
     Route: 065
  4. HYRIMOZ [Suspect]
     Active Substance: ADALIMUMAB-ADAZ
     Indication: Sarcoidosis
     Route: 058
  5. MEDROL [Concomitant]
     Active Substance: METHYLPREDNISOLONE
  6. METHOTREXATE [Concomitant]
     Active Substance: METHOTREXATE
  7. METHOTREXATE [Concomitant]
     Active Substance: METHOTREXATE
  8. PLAQUENIL [Concomitant]
     Active Substance: HYDROXYCHLOROQUINE SULFATE

REACTIONS (4)
  - Cardiac sarcoidosis [Unknown]
  - Cutaneous lupus erythematosus [Unknown]
  - Off label use [Unknown]
  - Systemic lupus erythematosus [Unknown]
